FAERS Safety Report 11722977 (Version 1)
Quarter: 2015Q4

REPORT INFORMATION
  Report Type: Spontaneous
  Country: US (occurrence: None)
  Receive Date: 20151110
  Receipt Date: 20151110
  Transmission Date: 20160304
  Serious: Yes (Other)
  Sender: FDA-Public Use
  Company Number: None

PATIENT
  Age: 84 Year
  Sex: Female
  Weight: 83.92 kg

DRUGS (23)
  1. COQ10 [Concomitant]
     Active Substance: UBIDECARENONE
  2. FISH OIL [Concomitant]
     Active Substance: FISH OIL
  3. GLUCOSAMINE CHONDROITIN [Concomitant]
     Active Substance: CHONDROITIN SULFATE (BOVINE)\GLUCOSAMINE HYDROCHLORIDE
  4. LEVOTHYROXIN [Concomitant]
     Active Substance: LEVOTHYROXINE
  5. ASPIRIN. [Concomitant]
     Active Substance: ASPIRIN
  6. MSM [Concomitant]
     Active Substance: DIMETHYL SULFONE
  7. AMLODIPINE [Concomitant]
     Active Substance: AMLODIPINE BESYLATE
  8. SPIRONOLACT [Concomitant]
  9. CUMIN-TUMERIC [Concomitant]
  10. LOSARTAN POT [Concomitant]
  11. EYE VITAMIN [Concomitant]
  12. VITAMIN B COMPLEX [Concomitant]
     Active Substance: CYANOCOBALAMIN\DEXPANTHENOL\NIACINAMIDE\PYRIDOXINE HYDROCHLORIDE\RIBOFLAVIN 5^-PHOSPHATE SODIUM\THIAMINE HYDROCHLORIDE\VITAMIN B COMPLEX
  13. MAGNESIUM [Concomitant]
     Active Substance: MAGNESIUM
  14. SPIRONOLACTONE. [Suspect]
     Active Substance: SPIRONOLACTONE
     Indication: HYPERTENSION
     Dosage: 1 PILL MORNING
     Route: 048
     Dates: end: 20150820
  15. CALCIUM [Concomitant]
     Active Substance: CALCIUM
  16. ZINC [Concomitant]
     Active Substance: ZINC\ZINC CHLORIDE
  17. FUROSEMIDE. [Concomitant]
     Active Substance: FUROSEMIDE
  18. GARLIC. [Concomitant]
     Active Substance: GARLIC
  19. MSM-CH [Concomitant]
  20. VITAMIN D3 [Concomitant]
     Active Substance: CHOLECALCIFEROL
  21. HYDROCHLOROTHIAZIDE. [Concomitant]
     Active Substance: HYDROCHLOROTHIAZIDE
  22. FLAXSEED OIL VITAMIN [Concomitant]
  23. BORAGE OIL [Concomitant]
     Active Substance: BORAGE OIL

REACTIONS (9)
  - Sleep disorder [None]
  - Constipation [None]
  - Decreased appetite [None]
  - Heart rate increased [None]
  - Dry mouth [None]
  - Blood pressure abnormal [None]
  - Somnolence [None]
  - Pruritus [None]
  - Dehydration [None]
